FAERS Safety Report 6577325-7 (Version None)
Quarter: 2010Q1

REPORT INFORMATION
  Report Type: 
  Country: None (occurrence: None)
  Receive Date: 20100210
  Receipt Date: 20100128
  Transmission Date: 20100710
  Serious: Yes (Hospitalization)
  Sender: FDA-Public Use
  Company Number: FR-JNJFOC-20100204049

PATIENT
  Sex: Male

DRUGS (5)
  1. CONTRAMAL [Suspect]
     Indication: POST HERPETIC NEURALGIA
     Route: 048
  2. PARACETAMOL [Suspect]
     Route: 048
  3. PARACETAMOL [Suspect]
     Indication: POST HERPETIC NEURALGIA
     Route: 048
  4. RIVOTRIL [Suspect]
     Indication: POST HERPETIC NEURALGIA
     Route: 048
  5. AMOXICILLIN [Suspect]
     Indication: TOOTH ABSCESS
     Route: 048

REACTIONS (3)
  - MALAISE [None]
  - NAUSEA [None]
  - SOMNOLENCE [None]
